FAERS Safety Report 5109405-7 (Version None)
Quarter: 2006Q3

REPORT INFORMATION
  Report Type: 
  Country: None (occurrence: None)
  Receive Date: 20060918
  Receipt Date: 20060906
  Transmission Date: 20061208
  Serious: Yes (Hospitalization)
  Sender: FDA-Public Use
  Company Number: MEDI-0004891

PATIENT
  Sex: Female

DRUGS (1)
  1. ETHYOL [Suspect]
     Indication: RADIOTHERAPY

REACTIONS (6)
  - LIVEDO RETICULARIS [None]
  - PAIN IN EXTREMITY [None]
  - PERIPHERAL COLDNESS [None]
  - PYREXIA [None]
  - RASH GENERALISED [None]
  - THROMBOSIS [None]
